FAERS Safety Report 9707914 (Version 1)
Quarter: 2013Q4

REPORT INFORMATION
  Report Type: Spontaneous
  Country: US (occurrence: US)
  Receive Date: 20131125
  Receipt Date: 20131125
  Transmission Date: 20140711
  Serious: No
  Sender: FDA-Public Use
  Company Number: US-TEVA-378410USA

PATIENT
  Sex: Female
  Weight: 54.48 kg

DRUGS (1)
  1. PARAGARD 380A [Suspect]
     Indication: CONTRACEPTION
     Route: 015
     Dates: start: 2012, end: 2012

REACTIONS (3)
  - Menorrhagia [Recovered/Resolved]
  - Abdominal pain [Recovered/Resolved]
  - Device expulsion [Recovered/Resolved]
